FAERS Safety Report 7501137-0 (Version None)
Quarter: 2011Q2

REPORT INFORMATION
  Report Type: 
  Country: None (occurrence: None)
  Receive Date: 20110524
  Receipt Date: 20100618
  Transmission Date: 20111010
  Serious: No
  Sender: FDA-Public Use
  Company Number: US-NOVEN-ALL1-2010-03495

PATIENT

DRUGS (2)
  1. SINGULAIR [Concomitant]
     Dosage: UNK MG, UNKNOWN
     Route: 065
  2. DAYTRANA [Suspect]
     Dosage: 20 MG, 1X/DAY:QD
     Route: 062
     Dates: start: 20100501

REACTIONS (2)
  - INCORRECT STORAGE OF DRUG [None]
  - NO ADVERSE EVENT [None]
